FAERS Safety Report 4701787-0 (Version None)
Quarter: 2005Q2

REPORT INFORMATION
  Report Type: 
  Country: None (occurrence: None)
  Receive Date: 20050627
  Receipt Date: 20050615
  Transmission Date: 20051028
  Serious: Yes (Death, Other)
  Sender: FDA-Public Use
  Company Number: 2005060747

PATIENT
  Sex: Male

DRUGS (2)
  1. ZOLOFT [Suspect]
  2. ULTRAM [Suspect]

REACTIONS (2)
  - CONVULSION [None]
  - DRUG INTERACTION [None]
